FAERS Safety Report 20545294 (Version 2)
Quarter: 2022Q1

REPORT INFORMATION
  Report Type: Spontaneous
  Country: IE (occurrence: IE)
  Receive Date: 20220303
  Receipt Date: 20220307
  Transmission Date: 20220423
  Serious: Yes (Death, Hospitalization, Other)
  Sender: FDA-Public Use
  Company Number: IE-MYLANLABS-2022M1001938

PATIENT
  Age: 70 Year
  Sex: Male

DRUGS (1)
  1. CLOZARIL [Suspect]
     Active Substance: CLOZAPINE
     Indication: Schizophrenia
     Dosage: UNK
     Route: 048
     Dates: start: 20010701

REACTIONS (5)
  - Lung neoplasm malignant [Fatal]
  - Leukocytosis [Fatal]
  - Neutrophilia [Fatal]
  - Mental disorder [Fatal]
  - Malaise [Unknown]

NARRATIVE: CASE EVENT DATE: 20220105
